FAERS Safety Report 8197996-1 (Version None)
Quarter: 2012Q1

REPORT INFORMATION
  Report Type: 
  Country: None (occurrence: None)
  Receive Date: 20120309
  Receipt Date: 20120202
  Transmission Date: 20120608
  Serious: No
  Sender: FDA-Public Use
  Company Number: US-AMGEN-USASP2012006966

PATIENT
  Age: 65 Year
  Sex: Male

DRUGS (5)
  1. XGEVA [Suspect]
     Indication: PROSTATE CANCER
     Dosage: 120 MG, Q4WK
     Dates: start: 20111222
  2. DEGARELIX [Concomitant]
     Dosage: UNK
  3. LISINOPRIL [Concomitant]
     Dosage: UNK
  4. METFORMIN HCL [Concomitant]
     Dosage: UNK
  5. GLIPIZIDE [Concomitant]
     Dosage: UNK

REACTIONS (4)
  - RASH MACULAR [None]
  - FLUSHING [None]
  - ERYTHEMA [None]
  - DRY SKIN [None]
